FAERS Safety Report 26000839 (Version 1)
Quarter: 2025Q4

REPORT INFORMATION
  Report Type: Spontaneous
  Country: US (occurrence: US)
  Receive Date: 20251105
  Receipt Date: 20251105
  Transmission Date: 20260118
  Serious: No
  Sender: ANI
  Company Number: US-ANIPHARMA-2025-US-044402

PATIENT
  Age: 41 Year
  Sex: Female
  Weight: 127.46 kg

DRUGS (1)
  1. CORTICOTROPIN [Suspect]
     Active Substance: CORTICOTROPIN
     Indication: Multiple sclerosis relapse
     Dosage: 80 UNITS DAILY FOR 20 DAYS
     Dates: start: 20250904, end: 20250922

REACTIONS (10)
  - Peripheral swelling [Recovering/Resolving]
  - Anal incontinence [Recovering/Resolving]
  - Hypersensitivity [Recovering/Resolving]
  - Contusion [Recovering/Resolving]
  - Diarrhoea [Recovering/Resolving]
  - Tearfulness [Recovering/Resolving]
  - Swelling face [Recovering/Resolving]
  - Weight increased [Recovering/Resolving]
  - Dizziness [Recovering/Resolving]
  - Headache [Recovering/Resolving]

NARRATIVE: CASE EVENT DATE: 20250901
